FAERS Safety Report 8544398-1 (Version None)
Quarter: 2012Q3

REPORT INFORMATION
  Report Type: 
  Country: None (occurrence: None)
  Receive Date: 20120727
  Receipt Date: 20120717
  Transmission Date: 20120928
  Serious: Yes (Hospitalization, Other)
  Sender: FDA-Public Use
  Company Number: US-BAYER-2010-004681

PATIENT
  Age: 43 Year
  Sex: Female
  Weight: 81.179 kg

DRUGS (11)
  1. VIBRAMYCIN [Concomitant]
     Dosage: UNK
     Route: 048
     Dates: start: 20070725
  2. MAXALT [Concomitant]
     Dosage: 10 MG, UNK
     Route: 048
     Dates: start: 20070724
  3. YAZ [Suspect]
     Indication: PRODUCT USED FOR UNKNOWN INDICATION
     Dosage: UNK
     Dates: start: 20070701, end: 20070801
  4. YASMIN [Suspect]
     Indication: MENSTRUATION IRREGULAR
     Dosage: UNK
     Dates: start: 20070701, end: 20070801
  5. MAXALT [Concomitant]
     Dosage: 10 MG TABLE, UNK
     Route: 048
     Dates: start: 20070818
  6. HYDROCODONE BITARTRATE + ACETAMINOPHEN [Concomitant]
     Dosage: UNK
     Route: 048
     Dates: start: 20070524, end: 20070816
  7. MEDROL [METHYLPREDNISOLONE ACETATE] [Concomitant]
     Dosage: UNK
     Route: 048
     Dates: start: 20070816
  8. LORTAB [Concomitant]
     Dosage: UNK UNK,1 HS
     Route: 048
     Dates: start: 20070816
  9. HYDROCODONE BITARTRATE + ACETAMINOPHEN [Concomitant]
     Dosage: UNK
     Route: 048
     Dates: start: 20070818
  10. TRAZODONE HYDROCHLORIDE [Concomitant]
     Dosage: 50 MG , HS
     Route: 048
     Dates: start: 20070818
  11. TRAZODONE HYDROCHLORIDE [Concomitant]
     Dosage: 150 MG, HS
     Route: 048
     Dates: start: 20070614, end: 20070721

REACTIONS (3)
  - DEEP VEIN THROMBOSIS [None]
  - PULMONARY EMBOLISM [None]
  - THROMBOSIS [None]
